FAERS Safety Report 6747168-X (Version None)
Quarter: 2010Q2

REPORT INFORMATION
  Report Type: 
  Country: None (occurrence: None)
  Receive Date: 20100528
  Receipt Date: 20100518
  Transmission Date: 20101027
  Serious: Yes (Other)
  Sender: FDA-Public Use
  Company Number: DE-PERRIGO-10DE009813

PATIENT
  Age: 64 Year
  Sex: Female

DRUGS (3)
  1. IBUPROFEN 200 MG 604 [Suspect]
     Indication: OSTEOARTHRITIS
     Dosage: 200 MG, TID
     Route: 048
  2. IBUPROFEN 200 MG 604 [Suspect]
     Dosage: 1200 MG, QD
     Route: 048
  3. IBUPROFEN 200 MG 604 [Suspect]
     Dosage: 1800 MG, QD
     Route: 048

REACTIONS (5)
  - ASTHMA [None]
  - DRUG INEFFECTIVE [None]
  - DYSPNOEA [None]
  - INCORRECT DOSE ADMINISTERED [None]
  - SENSE OF OPPRESSION [None]
